FAERS Safety Report 7627813-7 (Version None)
Quarter: 2011Q3

REPORT INFORMATION
  Report Type: 
  Country: None (occurrence: None)
  Receive Date: 20110721
  Receipt Date: 20110301
  Transmission Date: 20111222
  Serious: Yes (Other)
  Sender: FDA-Public Use
  Company Number: US-AMGEN-USASP2011011705

PATIENT
  Age: 60 Year
  Sex: Female

DRUGS (1)
  1. ENBREL [Suspect]
     Indication: RHEUMATOID ARTHRITIS
     Dates: start: 20000101

REACTIONS (21)
  - DISTURBANCE IN ATTENTION [None]
  - RHEUMATOID ARTHRITIS [None]
  - BALANCE DISORDER [None]
  - FATIGUE [None]
  - MENTAL IMPAIRMENT [None]
  - HEADACHE [None]
  - DYSSTASIA [None]
  - LUPUS-LIKE SYNDROME [None]
  - GASTRIC DISORDER [None]
  - PAIN IN EXTREMITY [None]
  - OROPHARYNGEAL PAIN [None]
  - SJOGREN'S SYNDROME [None]
  - NASAL DRYNESS [None]
  - ROSACEA [None]
  - SUNBURN [None]
  - HYPERSOMNIA [None]
  - MYALGIA [None]
  - MENOPAUSE [None]
  - EPISTAXIS [None]
  - BENIGN NEOPLASM OF THYROID GLAND [None]
  - PRURITUS [None]
